FAERS Safety Report 9701574 (Version 3)
Quarter: 2013Q4

REPORT INFORMATION
  Report Type: Spontaneous
  Country: DK (occurrence: DK)
  Receive Date: 20131121
  Receipt Date: 20131227
  Transmission Date: 20140711
  Serious: Yes (Disabling)
  Sender: FDA-Public Use
  Company Number: DK-ACTAVIS-2013-21385

PATIENT
  Sex: Female

DRUGS (16)
  1. PACLITAXEL ACTAVIS [Suspect]
     Indication: OVARIAN CANCER
     Dosage: UNK; STRENGTH: 6 MG/ML
     Route: 042
     Dates: start: 20121126, end: 20130408
  2. CARBOPLATIN HOSPIRA [Suspect]
     Indication: OVARIAN CANCER
     Dosage: UNK; STRENGTH: 10 MG/ML
     Route: 042
     Dates: start: 20121126, end: 20130408
  3. TIMOLOL [Concomitant]
     Indication: GLAUCOMA
     Dosage: UNK; 1MG/G
     Route: 050
  4. TRAVATAN [Concomitant]
     Indication: GLAUCOMA
     Dosage: UNK; 40 MCG/ML
     Route: 050
  5. LANTUS [Concomitant]
     Indication: DIABETES MELLITUS
     Dosage: UNK
     Route: 058
  6. HJERTEMAGNYL                       /00228701/ [Concomitant]
     Indication: THROMBOSIS PROPHYLAXIS
     Dosage: UNK
     Route: 048
  7. TRADOLAN [Concomitant]
     Indication: PAIN
     Dosage: UNK
     Route: 065
  8. OMEPRAZOL                          /00661201/ [Concomitant]
     Indication: DYSPEPSIA
     Dosage: UNK
     Route: 048
  9. SIMVASTATIN [Concomitant]
     Indication: PROPHYLAXIS
     Dosage: UNK
     Route: 048
  10. AMLODIPIN                          /00972401/ [Concomitant]
     Indication: HYPERTENSION
     Dosage: UNK
     Route: 048
  11. IMDUR [Concomitant]
     Indication: ANGINA PECTORIS
     Dosage: UNK
     Route: 048
     Dates: start: 20130513
  12. NOVORAPID [Concomitant]
     Indication: DIABETES MELLITUS
     Dosage: UNK; 100 UNITS / ML
     Route: 065
  13. IMOZOP [Concomitant]
     Indication: INSOMNIA
     Dosage: UNK
     Route: 048
  14. NITROLINGUAL [Concomitant]
     Indication: ANGINA PECTORIS
     Dosage: STYRKE: 0,4 MG/DOSIS
     Route: 060
     Dates: start: 20130516
  15. EMPERAL [Concomitant]
     Indication: NAUSEA
     Dosage: UNK
     Route: 065
     Dates: start: 20120926
  16. LOMUDAL [Concomitant]
     Indication: RHINITIS
     Dosage: UNK
     Route: 065
     Dates: start: 20130107

REACTIONS (4)
  - Pulmonary toxicity [Recovering/Resolving]
  - Interstitial lung disease [Recovering/Resolving]
  - Lung infiltration [Recovering/Resolving]
  - Bronchopulmonary disease [Recovering/Resolving]
